FAERS Safety Report 8381533-2 (Version None)
Quarter: 2012Q2

REPORT INFORMATION
  Report Type: 
  Country: None (occurrence: None)
  Receive Date: 20120523
  Receipt Date: 20120514
  Transmission Date: 20120825
  Serious: Yes (Hospitalization)
  Sender: FDA-Public Use
  Company Number: US-ABBOTT-12P-163-0932827-00

PATIENT
  Sex: Female
  Weight: 90 kg

DRUGS (9)
  1. INSULIN ASPART [Concomitant]
     Indication: DIABETES MELLITUS
     Dates: start: 20110401
  2. PRAVASTATIN [Concomitant]
     Indication: BLOOD CHOLESTEROL INCREASED
     Dates: start: 20090101
  3. METFORMIN HCL [Concomitant]
     Indication: DIABETES MELLITUS
     Dates: start: 19840101
  4. LISINOPRIL [Concomitant]
     Indication: HYPERTENSION
     Dates: start: 19840101
  5. INSULIN DETEMIR [Concomitant]
     Indication: DIABETES MELLITUS
     Dates: start: 20110401
  6. LEVOTHYROXINE SODIUM [Concomitant]
     Indication: HYPOTHYROIDISM
     Dates: start: 20060101
  7. HUMIRA [Suspect]
     Indication: PSORIASIS
     Route: 058
     Dates: start: 20111122, end: 20120306
  8. AMLODIPINE BESYLATE [Concomitant]
     Indication: HYPERTENSION
     Dates: start: 20090201
  9. ATENOLOL [Concomitant]
     Indication: HYPERTENSION
     Dates: start: 20090201

REACTIONS (1)
  - PYREXIA [None]
